FAERS Safety Report 16359737 (Version 1)
Quarter: 2019Q2

REPORT INFORMATION
  Report Type: Spontaneous
  Country: CN (occurrence: CN)
  Receive Date: 20190528
  Receipt Date: 20190528
  Transmission Date: 20190711
  Serious: Yes (Other)
  Sender: FDA-Public Use
  Company Number: CN-ROCHE-2315849

PATIENT
  Age: 42 Year
  Sex: Female

DRUGS (10)
  1. IRINOTECAN [Concomitant]
     Active Substance: IRINOTECAN
     Indication: ADENOCARCINOMA GASTRIC
     Dosage: DAY1, DAY8
     Route: 065
     Dates: start: 20151206
  2. APATINIB [Concomitant]
     Active Substance: APATINIB
     Indication: ADENOCARCINOMA GASTRIC
     Dosage: D1-D14,Q3W
     Route: 065
     Dates: start: 201511
  3. DUROGESIC [Concomitant]
     Active Substance: FENTANYL
     Indication: PAIN
     Route: 065
  4. FLUOROURACIL. [Concomitant]
     Active Substance: FLUOROURACIL
     Indication: ADENOCARCINOMA GASTRIC
     Dosage: DAY1, DAY8
     Route: 065
     Dates: start: 20151206
  5. TRAMAL [Concomitant]
     Active Substance: TRAMADOL
     Indication: PAIN
     Route: 065
  6. HERCEPTIN [Suspect]
     Active Substance: TRASTUZUMAB
     Indication: ADENOCARCINOMA GASTRIC
     Route: 065
     Dates: start: 20140418, end: 20140716
  7. GIMERACIL;OTERACIL POTASSIUM;TEGAFUR [Concomitant]
     Active Substance: GIMERACIL\OTERACIL\TEGAFUR
     Indication: ADENOCARCINOMA GASTRIC
     Dosage: D1-D14,Q3W
     Route: 065
  8. MORPHINE [Concomitant]
     Active Substance: MORPHINE
     Indication: PAIN
     Route: 042
  9. HERCEPTIN [Suspect]
     Active Substance: TRASTUZUMAB
     Route: 065
     Dates: start: 20140804, end: 20140826
  10. FOLINIC ACID [Concomitant]
     Active Substance: LEUCOVORIN
     Indication: ADENOCARCINOMA GASTRIC
     Dosage: DAY1, DAY8
     Route: 065
     Dates: start: 20151206

REACTIONS (8)
  - Alopecia [Unknown]
  - Intestinal obstruction [Unknown]
  - Abdominal pain [Recovering/Resolving]
  - Pelvic fluid collection [Unknown]
  - Accessory spleen [Unknown]
  - Agranulocytosis [Unknown]
  - Ascites [Unknown]
  - Pleural effusion [Unknown]
